FAERS Safety Report 7117433-5 (Version None)
Quarter: 2010Q4

REPORT INFORMATION
  Report Type: 
  Country: None (occurrence: None)
  Receive Date: 20101122
  Receipt Date: 20101116
  Transmission Date: 20110411
  Serious: Yes (Other)
  Sender: FDA-Public Use
  Company Number: AT-PFIZER INC-2010148755

PATIENT
  Sex: Male

DRUGS (1)
  1. ZYVOX [Suspect]

REACTIONS (4)
  - LEUKOCYTOSIS [None]
  - LYMPHOCYTOSIS [None]
  - RED BLOOD CELL ABNORMALITY [None]
  - THROMBOCYTOSIS [None]
